FAERS Safety Report 23415573 (Version 1)
Quarter: 2024Q1

REPORT INFORMATION
  Report Type: Spontaneous
  Country: MK (occurrence: None)
  Receive Date: 20240118
  Receipt Date: 20240118
  Transmission Date: 20240410
  Serious: Yes (Other)
  Sender: FDA-Public Use
  Company Number: MK-ROCHE-3490873

PATIENT
  Age: 12 Year
  Sex: Female
  Weight: 38 kg

DRUGS (4)
  1. ACTEMRA [Suspect]
     Active Substance: TOCILIZUMAB
     Indication: Juvenile idiopathic arthritis
     Route: 042
     Dates: start: 202304, end: 20240111
  2. METHOTREXATE [Concomitant]
     Active Substance: METHOTREXATE
  3. FOLAN [FOLIC ACID] [Concomitant]
  4. FAMOTIDINE [Concomitant]
     Active Substance: FAMOTIDINE

REACTIONS (6)
  - Headache [Recovered/Resolved]
  - Chest pain [Recovered/Resolved]
  - Laryngeal pain [Recovered/Resolved]
  - Oropharyngeal pain [Recovered/Resolved]
  - Paraesthesia [Recovered/Resolved]
  - Hypotension [Recovered/Resolved]

NARRATIVE: CASE EVENT DATE: 20240111
